FAERS Safety Report 23032630 (Version 1)
Quarter: 2023Q4

REPORT INFORMATION
  Report Type: Spontaneous
  Country: US (occurrence: None)
  Receive Date: 20231005
  Receipt Date: 20231005
  Transmission Date: 20240109
  Serious: No
  Sender: FDA-Public Use
  Company Number: None

PATIENT
  Age: 43 Year
  Sex: Female
  Weight: 91.17 kg

DRUGS (1)
  1. CANNABIGEROL\HERBALS [Suspect]
     Active Substance: CANNABIGEROL\HERBALS
     Indication: Product used for unknown indication
     Route: 048
     Dates: start: 20210429, end: 20231001

REACTIONS (5)
  - Nausea [None]
  - Vomiting [None]
  - Heart rate increased [None]
  - Product use in unapproved indication [None]
  - Physical product label issue [None]
